FAERS Safety Report 11855332 (Version 1)
Quarter: 2015Q4

REPORT INFORMATION
  Report Type: Spontaneous
  Country: US (occurrence: None)
  Receive Date: 20151218
  Receipt Date: 20151218
  Transmission Date: 20160305
  Serious: No
  Sender: FDA-Public Use
  Company Number: None

PATIENT
  Sex: Male

DRUGS (10)
  1. TAMSULOSIN [Concomitant]
     Active Substance: TAMSULOSIN
  2. OXYCODONE [Concomitant]
     Active Substance: OXYCODONE
  3. OXYCODONE AND ACETAMINOPHEN [Concomitant]
     Active Substance: ACETAMINOPHEN\OXYCODONE\OXYCODONE HYDROCHLORIDE
  4. CYANOCOBALAMIN. [Concomitant]
     Active Substance: CYANOCOBALAMIN
  5. CAPECITABINE 500MG TEVA PHARMACEUTICALS [Suspect]
     Active Substance: CAPECITABINE
     Indication: COLON CANCER
     Route: 048
     Dates: start: 20151026
  6. INSULIN [Concomitant]
     Active Substance: INSULIN NOS
  7. ENOXAPARIN [Concomitant]
     Active Substance: ENOXAPARIN
  8. IRON [Concomitant]
     Active Substance: IRON
  9. DELZICOL [Concomitant]
     Active Substance: MESALAMINE
  10. HUMIRA [Concomitant]
     Active Substance: ADALIMUMAB

REACTIONS (1)
  - Nausea [None]

NARRATIVE: CASE EVENT DATE: 2015
